FAERS Safety Report 6679191-8 (Version None)
Quarter: 2010Q2

REPORT INFORMATION
  Report Type: 
  Country: None (occurrence: None)
  Receive Date: 20100409
  Receipt Date: 20100326
  Transmission Date: 20101027
  Serious: Yes (Life-Threatening, Hospitalization)
  Sender: FDA-Public Use
  Company Number: FR-2010-0556

PATIENT
  Age: 73 Year
  Sex: Female
  Weight: 43 kg

DRUGS (7)
  1. VINORELBINE [Suspect]
     Indication: BREAST CANCER
     Dosage: 32 MG IV
     Route: 042
     Dates: start: 20100225, end: 20100304
  2. LAPATINIB [Suspect]
     Indication: BREAST CANCER
     Dosage: 1250 MG PO
     Route: 048
     Dates: start: 20100218, end: 20100308
  3. TAREG [Concomitant]
  4. CORTANCYL [Concomitant]
  5. ZOLPIDEM [Concomitant]
  6. SOMETA [Concomitant]
  7. ALPRAZOLAM [Concomitant]

REACTIONS (9)
  - ABDOMINAL PAIN [None]
  - CONFUSIONAL STATE [None]
  - DEHYDRATION [None]
  - DIARRHOEA [None]
  - HYPOTHERMIA [None]
  - NAUSEA [None]
  - NEUTROPENIA [None]
  - PERFORMANCE STATUS DECREASED [None]
  - VOMITING [None]
